FAERS Safety Report 4700013-6 (Version None)
Quarter: 2005Q2

REPORT INFORMATION
  Report Type: 
  Country: None (occurrence: None)
  Receive Date: 20050627
  Receipt Date: 20050511
  Transmission Date: 20051028
  Serious: Yes (Other)
  Sender: FDA-Public Use
  Company Number: PHBS2005FI06751

PATIENT
  Age: 48 Year
  Sex: Female

DRUGS (9)
  1. LEPONEX [Suspect]
     Dosage: 12.5 MG, QD
     Route: 048
     Dates: start: 20050417
  2. LEPONEX [Suspect]
     Dosage: 300 MG/D
     Route: 048
  3. LEPONEX [Suspect]
     Dosage: 200 MG/D
     Route: 048
  4. ZYPREXA [Concomitant]
     Route: 065
  5. SEROQUEL [Concomitant]
     Route: 065
  6. DIAPAM [Concomitant]
     Route: 065
  7. MELATON [Concomitant]
     Route: 065
  8. ORGAMETRIL [Concomitant]
     Route: 065
  9. MOVICOL [Concomitant]
     Route: 065

REACTIONS (4)
  - AFFECTIVE DISORDER [None]
  - BLOOD PRESSURE INCREASED [None]
  - BUNDLE BRANCH BLOCK LEFT [None]
  - RESTLESSNESS [None]
